FAERS Safety Report 16426424 (Version 3)
Quarter: 2020Q1

REPORT INFORMATION
  Report Type: Spontaneous
  Country: IL (occurrence: IL)
  Receive Date: 20190613
  Receipt Date: 20200119
  Transmission Date: 20200409
  Serious: Yes (Hospitalization, Other)
  Sender: FDA-Public Use
  Company Number: IL-NOVOPROD-667610

PATIENT
  Sex: Male
  Weight: 1.75 kg

DRUGS (1)
  1. LEVEMIR PENFILL [Suspect]
     Active Substance: INSULIN DETEMIR
     Indication: GLUCOSE TOLERANCE IMPAIRED
     Dosage: 12 IU, QD
     Route: 064

REACTIONS (4)
  - Low birth weight baby [Unknown]
  - Foetal exposure during pregnancy [Recovered/Resolved]
  - Immature respiratory system [Unknown]
  - Premature baby [Unknown]

NARRATIVE: CASE EVENT DATE: 20180131
